FAERS Safety Report 9520099 (Version 2)
Quarter: 2013Q3

REPORT INFORMATION
  Report Type: Report from Study
  Country: BR (occurrence: BR)
  Receive Date: 20130912
  Receipt Date: 20130913
  Transmission Date: 20140515
  Serious: Yes (Other)
  Sender: FDA-Public Use
  Company Number: PHHY2013BR098538

PATIENT
  Sex: Female

DRUGS (12)
  1. BUDESONIDE [Suspect]
     Dosage: 1600 UG, DAILY
  2. BUDESONIDE [Suspect]
     Dosage: 1200 UG, DAILY
  3. FORMOTEROL [Suspect]
     Dosage: 24 UG, BID
  4. FORMOTEROL [Suspect]
     Dosage: 12 UG, TID
  5. BAMIFYLLINE [Concomitant]
     Dosage: 1 DF, (1200 MG/ DAY)
  6. PREDNISONE [Concomitant]
     Dosage: 1 DF, (10 MG / DAY)
  7. MONTELUKAST [Concomitant]
     Dosage: 1 DF, (10 MG / DAY)
  8. OMALIZUMAB [Concomitant]
     Indication: ASTHMA
     Dosage: UNK UKN, UNK
  9. MIFLASONA [Concomitant]
     Dosage: UNK UKN, UNK
  10. LEXAPRO [Concomitant]
     Dosage: UNK UKN, UNK
  11. SALBUTAMOL [Concomitant]
     Dosage: UNK UKN, UNK
  12. ANTIHYPERTENSIVES [Concomitant]
     Dosage: UNK UKN, UNK

REACTIONS (5)
  - Obstructive airways disorder [Not Recovered/Not Resolved]
  - Lymph node calcification [Unknown]
  - Asthma [Unknown]
  - Blood immunoglobulin E increased [Unknown]
  - Breath sounds abnormal [Unknown]
